FAERS Safety Report 9310251 (Version 2)
Quarter: 2013Q2

REPORT INFORMATION
  Report Type: Report from Study
  Country: CA (occurrence: CA)
  Receive Date: 20130527
  Receipt Date: 20130605
  Transmission Date: 20140414
  Serious: Yes (Hospitalization)
  Sender: FDA-Public Use
  Company Number: PHHY2013CA052431

PATIENT
  Age: 52 Year
  Sex: Female

DRUGS (3)
  1. CLOZARIL [Suspect]
     Indication: SCHIZOPHRENIA
     Dosage: UNK UKN, UNK
     Dates: start: 20080212
  2. CLOZARIL [Suspect]
     Dosage: UNK
     Dates: start: 20130521, end: 20130524
  3. CIPROFLOXACIN [Concomitant]
     Dosage: UNK

REACTIONS (3)
  - Abdominal pain [Unknown]
  - Pyelonephritis [Recovered/Resolved]
  - Klebsiella infection [Recovered/Resolved]
